FAERS Safety Report 4634214-2 (Version None)
Quarter: 2005Q2

REPORT INFORMATION
  Report Type: 
  Country: None (occurrence: None)
  Receive Date: 20050325
  Receipt Date: 20050110
  Transmission Date: 20051028
  Serious: No
  Sender: FDA-Public Use
  Company Number: USA030228500

PATIENT
  Age: 79 Year
  Sex: Female

DRUGS (2)
  1. FORTEO [Suspect]
     Indication: OSTEOPOROSIS
     Dosage: 20 UG DAY
     Dates: start: 20030117
  2. CITRACAL (CALCIUM CITRATE) [Concomitant]

REACTIONS (5)
  - FEELING ABNORMAL [None]
  - NAUSEA [None]
  - TONGUE DISORDER [None]
  - UNDERDOSE [None]
  - VISUAL DISTURBANCE [None]
